FAERS Safety Report 10413134 (Version 1)
Quarter: 2014Q3

REPORT INFORMATION
  Report Type: Spontaneous
  Country: US (occurrence: US)
  Receive Date: 20140827
  Receipt Date: 20140827
  Transmission Date: 20150326
  Serious: Yes (Death, Other)
  Sender: FDA-Public Use
  Company Number: US-BRISTOL-MYERS SQUIBB COMPANY-21327424

PATIENT
  Age: 79 Year
  Sex: Male
  Weight: 78 kg

DRUGS (3)
  1. ASPIRIN. [Suspect]
     Active Substance: ASPIRIN
  2. COUMADIN [Suspect]
     Active Substance: WARFARIN SODIUM
  3. OMEPRAZOLE. [Concomitant]
     Active Substance: OMEPRAZOLE

REACTIONS (4)
  - Cerebellar haemorrhage [Unknown]
  - Cerebrovascular accident [Unknown]
  - Gastric haemorrhage [Unknown]
  - Death [Fatal]

NARRATIVE: CASE EVENT DATE: 2014
